FAERS Safety Report 21315670 (Version 1)
Quarter: 2022Q3

REPORT INFORMATION
  Report Type: Spontaneous
  Country: BR (occurrence: BR)
  Receive Date: 20220909
  Receipt Date: 20220909
  Transmission Date: 20221027
  Serious: Yes (Hospitalization)
  Sender: FDA-Public Use
  Company Number: BR-BIOMARINAP-BR-2022-145391

PATIENT

DRUGS (2)
  1. VIMIZIM [Suspect]
     Active Substance: ELOSULFASE ALFA
     Indication: Mucopolysaccharidosis IV
     Dosage: 5 MILLILITER, QW
     Route: 042
  2. DIPYRONE [Concomitant]
     Active Substance: DIPYRONE
     Indication: Headache
     Dosage: 25 DROP, PRN

REACTIONS (1)
  - Knee operation [Unknown]
